FAERS Safety Report 5241774-X (Version None)
Quarter: 2007Q1

REPORT INFORMATION
  Report Type: 
  Country: None (occurrence: None)
  Receive Date: 20070220
  Receipt Date: 20070207
  Transmission Date: 20070707
  Serious: Yes (Hospitalization)
  Sender: FDA-Public Use
  Company Number: FR-SANOFI-SYNTHELABO-A02200700418

PATIENT
  Age: 64 Year
  Sex: Female

DRUGS (10)
  1. KAYEXALATE [Suspect]
     Indication: DRUG USE FOR UNKNOWN INDICATION
     Route: 048
  2. VENOFER [Concomitant]
     Dosage: UNK
     Route: 042
  3. OMEPRAZOLE [Concomitant]
     Dosage: UNK
     Route: 065
  4. ORACILLINE [Concomitant]
     Dosage: UNK
     Route: 048
  5. LEXOMIL [Concomitant]
     Dosage: UNK
     Route: 048
  6. OROCAL [Suspect]
     Indication: DRUG USE FOR UNKNOWN INDICATION
     Dosage: 2 G
     Route: 048
  7. COUMADIN [Suspect]
     Indication: DRUG USE FOR UNKNOWN INDICATION
     Route: 048
  8. ZOLPIDEM TARTRATE [Suspect]
     Indication: DRUG USE FOR UNKNOWN INDICATION
     Route: 048
  9. MIMPARA [Suspect]
     Indication: DRUG USE FOR UNKNOWN INDICATION
     Route: 048
  10. ATACAND [Suspect]
     Indication: DRUG USE FOR UNKNOWN INDICATION
     Route: 048

REACTIONS (1)
  - INTRAVASCULAR HAEMOLYSIS [None]
